FAERS Safety Report 6980682-0 (Version None)
Quarter: 2010Q3

REPORT INFORMATION
  Report Type: 
  Country: None (occurrence: None)
  Receive Date: 20100909
  Receipt Date: 20100825
  Transmission Date: 20110219
  Serious: Yes (Other)
  Sender: FDA-Public Use
  Company Number: 2010AT000012

PATIENT
  Age: 80 Year
  Sex: Male

DRUGS (2)
  1. ALPROSTADIL [Suspect]
     Indication: DIABETIC VASCULAR DISORDER
     Dosage: 20 MCG,  40 MCG
     Dates: start: 20100722, end: 20100726
  2. ALPROSTADIL [Suspect]
     Indication: DIABETIC VASCULAR DISORDER
     Dosage: 20 MCG,  40 MCG
     Dates: start: 20100727, end: 20100802

REACTIONS (2)
  - INTERNATIONAL NORMALISED RATIO INCREASED [None]
  - PROTHROMBIN TIME PROLONGED [None]
